FAERS Safety Report 19098739 (Version 1)
Quarter: 2021Q2

REPORT INFORMATION
  Report Type: Report from Study
  Country: US (occurrence: US)
  Receive Date: 20210406
  Receipt Date: 20210406
  Transmission Date: 20210717
  Serious: No
  Sender: FDA-Public Use
  Company Number: NVSC2021US074550

PATIENT
  Sex: Female
  Weight: 53.52 kg

DRUGS (1)
  1. TREPROSTINIL. [Suspect]
     Active Substance: TREPROSTINIL
     Indication: PULMONARY ARTERIAL HYPERTENSION
     Dosage: 75 NG/KG/MIN (CONTINOUS)
     Route: 042
     Dates: start: 20190507

REACTIONS (1)
  - Ear discomfort [Unknown]
